FAERS Safety Report 5049481-3 (Version None)
Quarter: 2006Q3

REPORT INFORMATION
  Report Type: 
  Country: None (occurrence: None)
  Receive Date: 20060711
  Receipt Date: 20060711
  Transmission Date: 20061208
  Serious: Yes (Life-Threatening, Hospitalization)
  Sender: FDA-Public Use
  Company Number: None

PATIENT
  Age: 60 Year
  Sex: Female
  Weight: 58.9676 kg

DRUGS (2)
  1. MOBIC [Suspect]
     Indication: ARTHRITIS
     Dosage: ONE DAILY , 25 MG EVERY DAY
     Dates: start: 20040701, end: 20051206
  2. MOBIC [Suspect]
     Indication: FIBROMYALGIA
     Dosage: ONE DAILY , 25 MG EVERY DAY
     Dates: start: 20040701, end: 20051206

REACTIONS (1)
  - STEVENS-JOHNSON SYNDROME [None]
